FAERS Safety Report 5528515-3 (Version None)
Quarter: 2007Q4

REPORT INFORMATION
  Report Type: 
  Country: None (occurrence: None)
  Receive Date: 20071123
  Receipt Date: 20071112
  Transmission Date: 20080405
  Serious: Yes (Hospitalization)
  Sender: FDA-Public Use
  Company Number: GXKR2007PL09340

PATIENT
  Age: 11 Year
  Sex: Female

DRUGS (2)
  1. CYCLOSPORINE [Suspect]
     Indication: NEPHROTIC SYNDROME
  2. ENCORTON (PREDNISONE ACETATE) [Concomitant]

REACTIONS (17)
  - ANOREXIA [None]
  - BLOOD CREATININE INCREASED [None]
  - BLOOD UREA INCREASED [None]
  - COLITIS [None]
  - DEHYDRATION [None]
  - ELECTROLYTE IMBALANCE [None]
  - GASTROINTESTINAL HYPERMOTILITY [None]
  - HYPOCHLORAEMIA [None]
  - HYPOKALAEMIA [None]
  - HYPONATRAEMIA [None]
  - HYPOPROTEINAEMIA [None]
  - IMMUNOGLOBULINS DECREASED [None]
  - METABOLIC ALKALOSIS [None]
  - SKIN TURGOR DECREASED [None]
  - TONGUE COATED [None]
  - TONGUE DRY [None]
  - WEIGHT DECREASED [None]
